FAERS Safety Report 19013484 (Version 1)
Quarter: 2021Q1

REPORT INFORMATION
  Report Type: Spontaneous
  Country: US (occurrence: US)
  Receive Date: 20210316
  Receipt Date: 20210316
  Transmission Date: 20210420
  Serious: Yes (Other)
  Sender: FDA-Public Use
  Company Number: US-AMNEAL PHARMACEUTICALS-2021-AMRX-00572

PATIENT
  Age: 35 Year
  Sex: Female

DRUGS (12)
  1. FLUTICASONE. [Concomitant]
     Active Substance: FLUTICASONE
     Indication: ASTHMA
     Dosage: 1 DOSAGE FORM, 1 /DAY
     Dates: start: 1987
  2. VITAMIN D [COLECALCIFEROL] [Concomitant]
     Active Substance: CHOLECALCIFEROL
     Indication: VITAMIN D DEFICIENCY
     Dosage: 1 DOSAGE FORM, 1 /DAY
     Route: 048
     Dates: start: 20180202
  3. IBUPROFEN. [Concomitant]
     Active Substance: IBUPROFEN
     Indication: PELVIC PAIN
     Dosage: 200 MG,AS REQUIRED
     Route: 048
     Dates: start: 20190306, end: 20210210
  4. ELAGOLIX [Suspect]
     Active Substance: ELAGOLIX
     Indication: ENDOMETRIOSIS
     Dosage: 400 MILLIGRAM, BID
     Route: 048
     Dates: start: 20190714, end: 20210210
  5. SALMETEROL [Concomitant]
     Active Substance: SALMETEROL
     Indication: ASTHMA
     Dosage: 1 DOSAGE FORM, 1 /DAY
     Dates: start: 1987
  6. CODEINE PHOSPHATE;PARACETAMOL [Concomitant]
     Active Substance: ACETAMINOPHEN\CODEINE PHOSPHATE
     Indication: PELVIC PAIN
     Dosage: 300/15 MG (AS REQUIRED)
     Route: 048
     Dates: start: 20190306, end: 20210210
  7. ACTIVELLA [Suspect]
     Active Substance: ESTRADIOL\NORETHINDRONE ACETATE
     Indication: ENDOMETRIOSIS
     Dosage: 1 DOSAGE FORM, 1 /DAY
     Route: 048
     Dates: start: 20190713, end: 20210210
  8. VENTOLINE [SALBUTAMOL] [Concomitant]
     Active Substance: ALBUTEROL SULFATE
     Indication: ASTHMA
     Dosage: 180 MG,AS REQUIRED
     Dates: start: 2007
  9. BENADRYL [Concomitant]
     Active Substance: DIPHENHYDRAMINE HYDROCHLORIDE
     Indication: SEASONAL ALLERGY
     Dosage: 50 MG,AS REQUIRED
     Route: 048
     Dates: start: 1987
  10. ALLERGAN [Concomitant]
     Active Substance: PAPAIN
     Indication: SEASONAL ALLERGY
     Dosage: 1 DOSAGE FORM, 1 /DAY
     Route: 048
     Dates: start: 2007
  11. SINGULAIR [Concomitant]
     Active Substance: MONTELUKAST SODIUM
     Indication: ASTHMA
     Dosage: 10 MILLIGRAM, 1 /DAY
     Route: 048
     Dates: start: 2007
  12. VITAMINS NOS [Concomitant]
     Active Substance: VITAMINS
     Indication: VITAMIN D DEFICIENCY
     Dosage: 1 TABLETS, 2 /DAY
     Route: 048
     Dates: start: 20180202

REACTIONS (2)
  - Abortion induced [Unknown]
  - Maternal exposure during pregnancy [Unknown]

NARRATIVE: CASE EVENT DATE: 20210217
